FAERS Safety Report 12638566 (Version 1)
Quarter: 2016Q3

REPORT INFORMATION
  Report Type: Report from Study
  Country: US (occurrence: US)
  Receive Date: 20160809
  Receipt Date: 20160809
  Transmission Date: 20161109
  Serious: Yes (Life-Threatening)
  Sender: FDA-Public Use
  Company Number: US-JNJFOC-20160805656

PATIENT
  Sex: Male

DRUGS (1)
  1. SIMPONI ARIA [Suspect]
     Active Substance: GOLIMUMAB
     Indication: PSORIATIC ARTHROPATHY
     Route: 042
     Dates: end: 2016

REACTIONS (3)
  - Product use issue [Unknown]
  - Rocky mountain spotted fever [Unknown]
  - Off label use [Unknown]

NARRATIVE: CASE EVENT DATE: 2015
